FAERS Safety Report 9547660 (Version 1)
Quarter: 2013Q3

REPORT INFORMATION
  Report Type: Spontaneous
  Country: US (occurrence: US)
  Receive Date: 20130924
  Receipt Date: 20130924
  Transmission Date: 20140515
  Serious: No
  Sender: FDA-Public Use
  Company Number: US-009507513-1309USA010094

PATIENT
  Age: 58 Year
  Sex: Male
  Weight: 106.12 kg

DRUGS (11)
  1. PEGINTRON [Suspect]
     Dosage: REDIPEN, 150MICROGRAM/0.5 ML
     Route: 058
  2. VICTRELIS [Suspect]
     Dosage: UNKNOWN
     Route: 048
  3. REBETOL [Suspect]
     Dosage: UNKNOWN
     Route: 048
  4. LOSARTAN POTASSIUM TABLETS [Concomitant]
     Dosage: UNKNOWN
     Route: 048
  5. LUTEIN DK [Concomitant]
     Dosage: 20
  6. ORIGIN CO Q-10 [Concomitant]
     Dosage: UNKNOWN
     Route: 048
  7. OMEGA-3 [Concomitant]
     Dosage: UNKNOWN
     Route: 048
  8. CALCIUM (UNSPECIFIED) [Concomitant]
     Route: 048
  9. SENIOR [Concomitant]
     Dosage: MULTI TAB PLUS
     Route: 048
  10. VITAMIN D (UNSPECIFIED) [Concomitant]
     Dosage: 400 UNITS
     Route: 048
  11. MAGNESIUM (UNSPECIFIED) [Concomitant]
     Dosage: UNKNOWN
     Route: 048

REACTIONS (2)
  - Rash [Recovering/Resolving]
  - Feeling hot [Recovering/Resolving]
